FAERS Safety Report 24145270 (Version 1)
Quarter: 2024Q3

REPORT INFORMATION
  Report Type: Other
  Country: CN (occurrence: CN)
  Receive Date: 20240729
  Receipt Date: 20240729
  Transmission Date: 20241016
  Serious: Yes (Hospitalization)
  Sender: QILU PHARMACEUTICAL
  Company Number: CN-QILU PHARMACEUTICAL (HAINAN) CO.  LTD.-QLH-000173-2024

PATIENT
  Age: 54 Year
  Sex: Male
  Weight: 55 kg

DRUGS (2)
  1. PEMETREXED DISODIUM [Suspect]
     Active Substance: PEMETREXED DISODIUM
     Indication: Lung adenocarcinoma
     Dosage: ON DAY 7 VIA IVGTT
     Route: 041
     Dates: start: 20240613, end: 20240613
  2. SINTILIMAB [Concomitant]
     Active Substance: SINTILIMAB
     Indication: Lung adenocarcinoma
     Dosage: ON DAY 1 VIA INFUSION PUMP ONCE A DAY (QD)
     Route: 065
     Dates: start: 20240607, end: 20240607

REACTIONS (1)
  - Henoch-Schonlein purpura [Not Recovered/Not Resolved]

NARRATIVE: CASE EVENT DATE: 20240713
